FAERS Safety Report 21996717 (Version 2)
Quarter: 2023Q1

REPORT INFORMATION
  Report Type: Spontaneous
  Country: US (occurrence: US)
  Receive Date: 20230215
  Receipt Date: 20230216
  Transmission Date: 20230418
  Serious: No
  Sender: FDA-Public Use
  Company Number: US-PFIZER INC-PV202300013992

PATIENT
  Age: 52 Year
  Sex: Female
  Weight: 104.31 kg

DRUGS (10)
  1. NURTEC ODT [Suspect]
     Active Substance: RIMEGEPANT SULFATE
     Dosage: 1 DF, ALTERNATE DAY (DOSE/AMOUNT: 1 TABLET FREQUENCY OF ADMINISTRATION: EVERY OTHER DAY)
     Route: 060
     Dates: start: 20221212
  2. PROPRANOLOL [Concomitant]
     Active Substance: PROPRANOLOL HYDROCHLORIDE
     Indication: Migraine
     Dosage: 60 MG, DAILY (ONCE DAILY AT NIGHT)
  3. RIZATRIPTAN [Concomitant]
     Active Substance: RIZATRIPTAN
     Indication: Migraine prophylaxis
     Dosage: 10 MG
  4. LEFLUNOMIDE [Concomitant]
     Active Substance: LEFLUNOMIDE
     Indication: Arthritis
     Dosage: 20 MG
  5. HYDROMORPHONE [Concomitant]
     Active Substance: HYDROMORPHONE
     Indication: Back pain
     Dosage: 16 MG, 2X/DAY
  6. HYDROMORPHONE [Concomitant]
     Active Substance: HYDROMORPHONE
     Dosage: 8 MG, AS NEEDED (1-4 TABLETS A DAY AS NEEDED)
  7. GABAPENTIN [Concomitant]
     Active Substance: GABAPENTIN
     Dosage: 1800 MG, 1X/DAY (1800MG, AT NIGHT)
  8. OXYBUTYNIN [Concomitant]
     Active Substance: OXYBUTYNIN
     Dosage: 10 MG
  9. CELECOXIB [Concomitant]
     Active Substance: CELECOXIB
     Dosage: 60 MG, 1X/DAY (TIMES THREE TABLETS, 60MG TOTAL, AT NIGHT)
  10. TIZANIDINE [Concomitant]
     Active Substance: TIZANIDINE
     Dosage: 4 MG, AS NEEDED (I TOOK THE FIRST ONE LAST NIGHT THAT I HAVE TAKEN IN A LONG TIME)

REACTIONS (10)
  - Malaise [Unknown]
  - Musculoskeletal stiffness [Not Recovered/Not Resolved]
  - Back pain [Not Recovered/Not Resolved]
  - Rash [Not Recovered/Not Resolved]
  - Arthritis [Not Recovered/Not Resolved]
  - Oropharyngeal pain [Not Recovered/Not Resolved]
  - Headache [Unknown]
  - Movement disorder [Not Recovered/Not Resolved]
  - Herpes zoster [Not Recovered/Not Resolved]
  - Feeling abnormal [Not Recovered/Not Resolved]

NARRATIVE: CASE EVENT DATE: 20230101
